FAERS Safety Report 25755719 (Version 1)
Quarter: 2025Q3

REPORT INFORMATION
  Report Type: Spontaneous
  Country: US (occurrence: None)
  Receive Date: 20250902
  Receipt Date: 20250902
  Transmission Date: 20251021
  Serious: Yes (Other)
  Sender: FDA-CTU
  Company Number: None

PATIENT
  Age: 75 Year
  Sex: Female
  Weight: 63 kg

DRUGS (5)
  1. ALENDRONATE SODIUM [Suspect]
     Active Substance: ALENDRONATE SODIUM
     Indication: Osteopenia
     Route: 048
     Dates: start: 20250722, end: 20250722
  2. Synthroid 50ug [Concomitant]
  3. Vit D3 5000 per day [Concomitant]
  4. Flaxseed oil 1200 per day [Concomitant]
  5. B12 2000 per day [Concomitant]

REACTIONS (2)
  - Synovitis [None]
  - Pain in extremity [None]

NARRATIVE: CASE EVENT DATE: 20250724
